FAERS Safety Report 6379503-9 (Version None)
Quarter: 2009Q3

REPORT INFORMATION
  Report Type: 
  Country: None (occurrence: None)
  Receive Date: 20090928
  Receipt Date: 20090918
  Transmission Date: 20100115
  Serious: Yes (Hospitalization)
  Sender: FDA-Public Use
  Company Number: GB-BAYER-200933346GPV

PATIENT
  Age: 65 Year
  Sex: Male

DRUGS (3)
  1. SORAFENIB [Suspect]
     Indication: RENAL CELL CARCINOMA
     Dosage: TOTAL DAILY DOSE: 400 MG
     Dates: start: 20090529, end: 20090914
  2. ATENOLO [Concomitant]
     Route: 048
  3. PERINDOPRIL [Concomitant]
     Route: 048

REACTIONS (2)
  - ATRIAL FLUTTER [None]
  - DYSPNOEA [None]
